FAERS Safety Report 8602039 (Version 5)
Quarter: 2014Q2

REPORT INFORMATION
  Report Type: Spontaneous
  Country: US (occurrence: US)
  Receive Date: 20120607
  Receipt Date: 20140425
  Transmission Date: 20141212
  Serious: No
  Sender: FDA-Public Use
  Company Number: US-ASTRAZENECA-2012SE36178

PATIENT
  Age: 62 Year
  Sex: Male
  Weight: 83.5 kg

DRUGS (17)
  1. NEXIUM [Suspect]
     Indication: NAUSEA
     Route: 048
     Dates: start: 19980520
  2. NEXIUM [Suspect]
     Indication: NAUSEA
     Route: 048
     Dates: start: 20050516
  3. NEXIUM [Suspect]
     Indication: NAUSEA
     Route: 048
     Dates: start: 20080519
  4. NEXIUM [Suspect]
     Indication: NAUSEA
     Route: 048
     Dates: start: 20080520, end: 2010
  5. ASACOL [Concomitant]
     Dates: start: 20080519
  6. BALSALAZIDE DISODIUM [Concomitant]
     Dates: start: 20130426
  7. AMLODIPINE BESYLATE [Concomitant]
     Indication: CARDIAC DISORDER
     Dates: start: 20130426
  8. AMLODIPINE BESYLATE [Concomitant]
     Indication: BLOOD PRESSURE ABNORMAL
     Dates: start: 20130426
  9. ROPINIROLE HYDROCHLORIDE [Concomitant]
     Indication: RESTLESS LEGS SYNDROME
     Dates: start: 20080519
  10. ROPINIROLE HYDROCHLORIDE [Concomitant]
     Indication: RESTLESS LEGS SYNDROME
     Dosage: 1 MG ONE TO TWO TABLETS EVERY SIX HOURS
     Dates: start: 20130426
  11. COLESTIPOL HCL [Concomitant]
     Indication: BLOOD CHOLESTEROL
     Dosage: 1 GM TAKEN 1 TWICE A DAY
     Dates: start: 20130426
  12. OXYCODONE/ACETAMINOPHEN [Concomitant]
     Indication: PAIN
     Dosage: 7.5/325 TAKE 1 TO 2 TABLETS EVERY 4 TO SIX HOURS AS NEEDED MAX DAILY 12 TABS
     Dates: start: 20130426
  13. PREDNISONE [Concomitant]
     Dates: start: 20130426
  14. CLONAZEPAM [Concomitant]
     Indication: SLEEP DISORDER
     Dosage: 0.5 MG TAKE ONE TO TWO TABS DAILY
     Dates: start: 20130426
  15. IBUPROFEN [Concomitant]
     Indication: PAIN
     Dates: start: 20130426
  16. BUDESONIDE EC [Concomitant]
     Dates: start: 20130426
  17. FERROUS SULFATE [Concomitant]
     Indication: BLOOD IRON ABNORMAL
     Dates: start: 20130426

REACTIONS (5)
  - Osteoporosis [Unknown]
  - Multiple fractures [Unknown]
  - Foot fracture [Unknown]
  - Arthritis [Unknown]
  - Vitamin B complex deficiency [Unknown]
